FAERS Safety Report 13926228 (Version 1)
Quarter: 2017Q3

REPORT INFORMATION
  Report Type: Spontaneous
  Country: BE (occurrence: BE)
  Receive Date: 20170831
  Receipt Date: 20170831
  Transmission Date: 20171127
  Serious: Yes (Death, Hospitalization, Other)
  Sender: FDA-Public Use
  Company Number: BE-BAYER-2017-161595

PATIENT
  Sex: Male

DRUGS (1)
  1. XOFIGO [Suspect]
     Active Substance: RADIUM RA-223 DICHLORIDE
     Dosage: UNK
     Route: 042
     Dates: start: 20170707

REACTIONS (4)
  - Staphylococcal sepsis [None]
  - Platelet count decreased [None]
  - Death [Fatal]
  - Cerebral haemorrhage [None]

NARRATIVE: CASE EVENT DATE: 2017
